FAERS Safety Report 7215101-2 (Version None)
Quarter: 2011Q1

REPORT INFORMATION
  Report Type: 
  Country: None (occurrence: None)
  Receive Date: 20110107
  Receipt Date: 20100928
  Transmission Date: 20110831
  Serious: No
  Sender: FDA-Public Use
  Company Number: A0877666A

PATIENT
  Age: 68 Year
  Sex: Female

DRUGS (9)
  1. CALTRATE [Concomitant]
  2. M.V.I. [Concomitant]
  3. GLUCOSAMINE [Concomitant]
  4. LOVAZA [Suspect]
     Dosage: 2G TWICE PER DAY
     Route: 048
     Dates: start: 20100804, end: 20100816
  5. PAXIL [Concomitant]
  6. NEXIUM [Concomitant]
  7. BIOTENE [Concomitant]
  8. DIGOXIN [Concomitant]
  9. SYNTHROID [Concomitant]

REACTIONS (2)
  - PAIN [None]
  - MYALGIA [None]
